FAERS Safety Report 19035621 (Version 1)
Quarter: 2021Q1

REPORT INFORMATION
  Report Type: Report from Study
  Country: GB (occurrence: GB)
  Receive Date: 20210320
  Receipt Date: 20210320
  Transmission Date: 20210420
  Serious: Yes (Hospitalization, Other)
  Sender: FDA-Public Use
  Company Number: GB-TAKEDA-GB201702125

PATIENT
  Age: 47 Year
  Sex: Female
  Weight: 57.6 kg

DRUGS (8)
  1. TAUROLOCK [Concomitant]
     Active Substance: TAUROLIDINE
     Indication: ANTIBIOTIC PROPHYLAXIS
     Dosage: 3.0 ML, 1X/DAY:QD
     Route: 042
     Dates: start: 20160909
  2. TEDUGLUTIDE [Suspect]
     Active Substance: TEDUGLUTIDE
     Indication: SHORT-BOWEL SYNDROME
     Dosage: 2.6 MG, 1X/DAY:QD, (0.05 MG/KG, 7 DOSES A WEEK)
     Route: 058
     Dates: start: 20130401, end: 20140101
  3. OMEPRAZOLE. [Concomitant]
     Active Substance: OMEPRAZOLE
     Indication: GASTROINTESTINAL STOMA COMPLICATION
     Dosage: 40.0 MG, 2X/DAY:BID
     Route: 048
  4. ESTRADIOL. [Concomitant]
     Active Substance: ESTRADIOL
     Indication: MENOPAUSE
     Dosage: 75.0 ?G, OTHER (TRANSDERMAL)
     Route: 062
  5. LOPERAMIDE [Concomitant]
     Active Substance: LOPERAMIDE
     Indication: GASTROINTESTINAL STOMA COMPLICATION
     Dosage: 4.0 MG, 3X/DAY:TID
     Route: 048
  6. TEDUGLUTIDE [Suspect]
     Active Substance: TEDUGLUTIDE
     Indication: SHORT-BOWEL SYNDROME
     Dosage: 2.6 MG, 1X/DAY:QD, (0.05 MG/KG, 7 DOSES A WEEK)
     Route: 058
     Dates: start: 20130401, end: 20140101
  7. TEDUGLUTIDE [Suspect]
     Active Substance: TEDUGLUTIDE
     Indication: SHORT-BOWEL SYNDROME
     Dosage: 2.6 MG, 1X/DAY:QD, (0.05 MG/KG, 7 DOSES A WEEK)
     Route: 058
     Dates: start: 20130401, end: 20140101
  8. TEDUGLUTIDE [Suspect]
     Active Substance: TEDUGLUTIDE
     Indication: SHORT-BOWEL SYNDROME
     Dosage: 2.6 MG, 1X/DAY:QD, (0.05 MG/KG, 7 DOSES A WEEK)
     Route: 058
     Dates: start: 20130401, end: 20140101

REACTIONS (1)
  - Sepsis [Recovered/Resolved]

NARRATIVE: CASE EVENT DATE: 20170126
